FAERS Safety Report 17356263 (Version 7)
Quarter: 2020Q3

REPORT INFORMATION
  Report Type: Report from Study
  Country: US (occurrence: US)
  Receive Date: 20200131
  Receipt Date: 20200925
  Transmission Date: 20201102
  Serious: Yes (Hospitalization, Other)
  Sender: FDA-Public Use
  Company Number: NVSC2020US024274

PATIENT
  Age: 84 Year
  Sex: Female

DRUGS (5)
  1. ENTRESTO [Suspect]
     Active Substance: SACUBITRIL\VALSARTAN
     Indication: CARDIAC FAILURE CONGESTIVE
     Dosage: UNK
     Route: 048
     Dates: start: 20200116
  2. ENTRESTO [Suspect]
     Active Substance: SACUBITRIL\VALSARTAN
     Indication: CARDIAC FAILURE
  3. WARFARIN SODIUM. [Suspect]
     Active Substance: WARFARIN SODIUM
     Indication: PRODUCT USED FOR UNKNOWN INDICATION
     Dosage: UNK
     Route: 065
  4. CARVEDILOL. [Concomitant]
     Active Substance: CARVEDILOL
     Dosage: UNK (DOSE INCREASED)
     Route: 065
  5. CARVEDILOL. [Concomitant]
     Active Substance: CARVEDILOL
     Indication: PRODUCT USED FOR UNKNOWN INDICATION
     Dosage: UNK
     Route: 065
     Dates: start: 202003

REACTIONS (14)
  - Dyspnoea [Unknown]
  - Somnolence [Recovering/Resolving]
  - Mental status changes [Recovering/Resolving]
  - Confusional state [Unknown]
  - Blood cholesterol abnormal [Recovering/Resolving]
  - Hypotension [Not Recovered/Not Resolved]
  - Bacterial infection [Recovering/Resolving]
  - Insomnia [Recovering/Resolving]
  - Fatigue [Unknown]
  - Sepsis [Recovering/Resolving]
  - Myocardial infarction [Unknown]
  - Lethargy [Recovering/Resolving]
  - Herpes zoster [Recovered/Resolved]
  - Haemorrhoidal haemorrhage [Unknown]

NARRATIVE: CASE EVENT DATE: 2019
